FAERS Safety Report 5678870-9 (Version None)
Quarter: 2008Q1

REPORT INFORMATION
  Report Type: 
  Country: None (occurrence: None)
  Receive Date: 20080325
  Receipt Date: 20080318
  Transmission Date: 20080703
  Serious: Yes (Hospitalization)
  Sender: FDA-Public Use
  Company Number: IT-JNJFOC-20080301932

PATIENT
  Age: 45 Year
  Sex: Male
  Weight: 66 kg

DRUGS (7)
  1. REMICADE [Suspect]
     Indication: COLITIS ULCERATIVE
     Route: 042
  2. DELTACORTENE [Concomitant]
     Indication: COLITIS ULCERATIVE
     Route: 048
  3. LIMPIDEX [Concomitant]
     Indication: GASTROINTESTINAL DISORDER THERAPY
     Route: 048
  4. AZATIOPRINA [Concomitant]
     Indication: COLITIS ULCERATIVE
     Route: 048
  5. ASACOL [Concomitant]
     Indication: COLITIS ULCERATIVE
     Route: 048
  6. ASACOL [Concomitant]
     Route: 054
  7. TOPSTER [Concomitant]
     Indication: COLITIS ULCERATIVE
     Route: 054

REACTIONS (7)
  - ABDOMINAL PAIN [None]
  - ARTHRALGIA [None]
  - BACK PAIN [None]
  - COLITIS ULCERATIVE [None]
  - DIARRHOEA [None]
  - MYALGIA [None]
  - PYREXIA [None]
